FAERS Safety Report 5095433-7 (Version None)
Quarter: 2006Q3

REPORT INFORMATION
  Report Type: 
  Country: None (occurrence: None)
  Receive Date: 20060901
  Receipt Date: 20060823
  Transmission Date: 20061208
  Serious: Yes (Other)
  Sender: FDA-Public Use
  Company Number: US-ROCHE-460902

PATIENT
  Age: 62 Year
  Sex: Female

DRUGS (10)
  1. PEGASYS [Suspect]
     Indication: HEPATITIS C VIRUS
     Dosage: STRENGTH REPORTED AS 180MCG/0.5ML
     Route: 058
     Dates: start: 20051102, end: 20051217
  2. PEGASYS [Suspect]
     Route: 058
     Dates: start: 20051218
  3. RIBAVIRIN [Suspect]
     Indication: HEPATITIS C VIRUS
     Route: 048
     Dates: start: 20051102, end: 20051217
  4. RIBAVIRIN [Suspect]
     Route: 048
     Dates: start: 20051218
  5. NEUPOGEN [Concomitant]
     Dates: start: 20051220
  6. PROCRIT [Concomitant]
     Dates: start: 20060721
  7. ESTROGENS SOL/INJ [Concomitant]
     Dates: start: 19970615
  8. WELLBUTRIN [Concomitant]
  9. QUETAPINE FUMARATE [Concomitant]
     Dosage: REPORTED AS SEROQUIL)
  10. ASPIRIN [Concomitant]
     Dosage: DOSE REPORTED AS A LITTLE PIECE EVERYDAY

REACTIONS (3)
  - BLOOD PRESSURE INCREASED [None]
  - TRANSIENT ISCHAEMIC ATTACK [None]
  - WHITE BLOOD CELL COUNT DECREASED [None]
